FAERS Safety Report 16885207 (Version 1)
Quarter: 2019Q4

REPORT INFORMATION
  Report Type: Report from Study
  Country: ES (occurrence: ES)
  Receive Date: 20191004
  Receipt Date: 20191004
  Transmission Date: 20200122
  Serious: Yes (Other)
  Sender: FDA-Public Use
  Company Number: ES-PFIZER INC-2019420536

PATIENT

DRUGS (3)
  1. DOBUTAMINE HCL [Suspect]
     Active Substance: DOBUTAMINE HYDROCHLORIDE
     Dosage: UNK (10 UG/KG/MIN)EVERY 3 MINUTES, INCREASED
     Route: 042
  2. DOBUTAMINE HCL [Suspect]
     Active Substance: DOBUTAMINE HYDROCHLORIDE
     Dosage: UNK, 40 UG/KG/MIN, MAXIMAL DOSE, MAINTAINED OVER 6 MINUTES
     Route: 042
  3. DOBUTAMINE HCL [Suspect]
     Active Substance: DOBUTAMINE HYDROCHLORIDE
     Dosage: UNK (10 UG/KG/MIN)
     Route: 042

REACTIONS (1)
  - Ventricular tachycardia [Unknown]
